FAERS Safety Report 7097757-0 (Version None)
Quarter: 2010Q4

REPORT INFORMATION
  Report Type: 
  Country: None (occurrence: None)
  Receive Date: 20101103
  Receipt Date: 20101027
  Transmission Date: 20110411
  Serious: Yes (Disabling)
  Sender: FDA-Public Use
  Company Number: DSA_44025_2010

PATIENT
  Sex: Female

DRUGS (3)
  1. XENAZINE [Suspect]
     Indication: BALLISMUS
     Dosage: 12.5 MG BID ORAL
     Route: 048
     Dates: start: 20100501
  2. XENAZINE [Suspect]
     Indication: CHOREOATHETOSIS
     Dosage: 12.5 MG BID ORAL
     Route: 048
     Dates: start: 20100501
  3. ARTANE [Concomitant]

REACTIONS (5)
  - ABNORMAL BEHAVIOUR [None]
  - CRYING [None]
  - DEPRESSED MOOD [None]
  - JOINT STIFFNESS [None]
  - WALKING AID USER [None]
